FAERS Safety Report 4891976-7 (Version None)
Quarter: 2006Q1

REPORT INFORMATION
  Report Type: 
  Country: None (occurrence: None)
  Receive Date: 20060124
  Receipt Date: 20060124
  Transmission Date: 20060701
  Serious: No
  Sender: FDA-Public Use
  Company Number: None

PATIENT
  Age: 52 Year
  Sex: Male
  Weight: 99.7913 kg

DRUGS (4)
  1. GAMMAGARD S/D [Suspect]
     Indication: BLOOD IMMUNOGLOBULIN G DECREASED
     Dosage: 50 GMS IV MONTHLY
     Route: 042
     Dates: start: 20051006
  2. GAMMAGARD S/D [Suspect]
     Indication: CHRONIC SINUSITIS
     Dosage: 50 GMS IV MONTHLY
     Route: 042
     Dates: start: 20051006
  3. GAMMAGARD S/D [Suspect]
     Indication: BLOOD IMMUNOGLOBULIN G DECREASED
     Dosage: 50 GMS IV MONTHLY
     Route: 042
     Dates: start: 20051228
  4. GAMMAGARD S/D [Suspect]
     Indication: CHRONIC SINUSITIS
     Dosage: 50 GMS IV MONTHLY
     Route: 042
     Dates: start: 20051228

REACTIONS (4)
  - BLISTER [None]
  - OPEN WOUND [None]
  - RASH [None]
  - WOUND SECRETION [None]
